FAERS Safety Report 12928271 (Version 1)
Quarter: 2016Q4

REPORT INFORMATION
  Report Type: Spontaneous
  Country: US (occurrence: US)
  Receive Date: 20161110
  Receipt Date: 20161110
  Transmission Date: 20170207
  Serious: No
  Sender: FDA-Public Use
  Company Number: None

PATIENT

DRUGS (2)
  1. CALCIUM CHLORIDE 10% CALCIUM CHLORIDE [Suspect]
     Active Substance: CALCIUM CHLORIDE
     Dosage: SYRINGE
  2. EPINEPHRINE. [Suspect]
     Active Substance: EPINEPHRINE

REACTIONS (3)
  - Wrong drug administered [None]
  - Product packaging confusion [None]
  - Wrong technique in product usage process [None]
